FAERS Safety Report 18972608 (Version 5)
Quarter: 2022Q3

REPORT INFORMATION
  Report Type: Spontaneous
  Country: JP (occurrence: JP)
  Receive Date: 20210305
  Receipt Date: 20220714
  Transmission Date: 20221027
  Serious: Yes (Hospitalization)
  Sender: FDA-Public Use
  Company Number: JP-GSKNCCC-CASE-01157304_AE-41334

PATIENT

DRUGS (1)
  1. SERETIDE [Suspect]
     Active Substance: FLUTICASONE PROPIONATE\SALMETEROL XINAFOATE
     Indication: Asthma
     Dosage: UNK, BID, 2 INHALATIONS PER DOSE
     Route: 055
     Dates: start: 20201009

REACTIONS (2)
  - Asthma [Recovering/Resolving]
  - Wrong technique in product usage process [Unknown]
